FAERS Safety Report 6382453-5 (Version None)
Quarter: 2009Q3

REPORT INFORMATION
  Report Type: 
  Country: None (occurrence: None)
  Receive Date: 20090928
  Receipt Date: 20090928
  Transmission Date: 20100115
  Serious: Yes (Other)
  Sender: FDA-Public Use
  Company Number: None

PATIENT

DRUGS (1)
  1. LIDOCAINE 1% INJ [Suspect]
     Indication: LOCAL ANAESTHESIA
     Dosage: AMT TO CAUSE LOCAL ANESTHESIA ONCE IM
     Route: 030
     Dates: start: 20090924, end: 20090924

REACTIONS (2)
  - INJECTION SITE PAIN [None]
  - PRODUCT SUBSTITUTION ISSUE [None]
